FAERS Safety Report 10469858 (Version 1)
Quarter: 2014Q3

REPORT INFORMATION
  Report Type: Report from Study
  Country: US (occurrence: US)
  Receive Date: 20140923
  Receipt Date: 20140923
  Transmission Date: 20150326
  Serious: Yes (Other)
  Sender: FDA-Public Use
  Company Number: PHEH2014US018591

PATIENT
  Sex: Male

DRUGS (1)
  1. DIOVAN [Suspect]
     Active Substance: VALSARTAN
     Dosage: 80 MG, UNK
     Route: 048

REACTIONS (7)
  - Brain oedema [Unknown]
  - Head injury [Unknown]
  - Thrombosis [Unknown]
  - Road traffic accident [Unknown]
  - Coma [Unknown]
  - Injury [Unknown]
  - Cerebrovascular accident [Unknown]
